FAERS Safety Report 11276219 (Version 1)
Quarter: 2015Q3

REPORT INFORMATION
  Report Type: Spontaneous
  Country: US (occurrence: None)
  Receive Date: 20150715
  Receipt Date: 20150715
  Transmission Date: 20151125
  Serious: No
  Sender: FDA-Public Use
  Company Number: None

PATIENT
  Age: 50 Year
  Sex: Female
  Weight: 45.81 kg

DRUGS (4)
  1. CALCIUM + D3 [Concomitant]
     Active Substance: CALCIUM\CHOLECALCIFEROL
  2. VITAMIN D3 [Concomitant]
     Active Substance: CHOLECALCIFEROL
  3. IBANDRONATE SODIUM. [Suspect]
     Active Substance: IBANDRONATE SODIUM
     Indication: OSTEOPOROSIS
     Dosage: 1 PILL 1 TIME/MONTH BY MOUTH
     Route: 048
     Dates: start: 20150628, end: 20150628
  4. ESCITALOPRAM [Concomitant]
     Active Substance: ESCITALOPRAM OXALATE

REACTIONS (10)
  - Diarrhoea [None]
  - Pain [None]
  - Bone pain [None]
  - Chest pain [None]
  - Pain in extremity [None]
  - Headache [None]
  - Gingival pain [None]
  - Impaired work ability [None]
  - Paraesthesia [None]
  - Gastric disorder [None]

NARRATIVE: CASE EVENT DATE: 20150628
